FAERS Safety Report 14075343 (Version 1)
Quarter: 2017Q4

REPORT INFORMATION
  Report Type: Spontaneous
  Country: FR (occurrence: FR)
  Receive Date: 20171011
  Receipt Date: 20171011
  Transmission Date: 20180321
  Serious: Yes (Hospitalization)
  Sender: FDA-Public Use
  Company Number: FR-JNJFOC-20171002099

PATIENT
  Age: 61 Year
  Sex: Male
  Weight: 48 kg

DRUGS (8)
  1. IMOVANE [Concomitant]
     Active Substance: ZOPICLONE
     Route: 065
  2. PANTOPRAZOLE [Concomitant]
     Active Substance: PANTOPRAZOLE
     Route: 065
     Dates: start: 20170721, end: 20170815
  3. DACRYOSERUM [Concomitant]
     Active Substance: BORIC ACID\SODIUM BORATE
     Route: 065
     Dates: start: 20170818
  4. DUROGESIC [Suspect]
     Active Substance: FENTANYL
     Indication: PAIN
     Route: 065
     Dates: start: 20170727, end: 20170815
  5. ACTISKENAN [Suspect]
     Active Substance: MORPHINE SULFATE
     Indication: SQUAMOUS CELL CARCINOMA OF SKIN
     Route: 065
  6. TRAMADOL HYDROCHLORIDE. [Concomitant]
     Active Substance: TRAMADOL HYDROCHLORIDE
     Route: 066
     Dates: start: 20170721
  7. EFFERALGAN [Concomitant]
     Active Substance: ACETAMINOPHEN
     Route: 065
     Dates: start: 20170721
  8. PEMBROLIZUMAB. [Suspect]
     Active Substance: PEMBROLIZUMAB
     Indication: SQUAMOUS CELL CARCINOMA OF SKIN
     Route: 042
     Dates: start: 20170807

REACTIONS (5)
  - Constipation [Recovered/Resolved]
  - Dysphagia [Unknown]
  - General physical condition abnormal [Not Recovered/Not Resolved]
  - Abdominal pain [Recovered/Resolved]
  - Diarrhoea [Unknown]

NARRATIVE: CASE EVENT DATE: 201708
